FAERS Safety Report 11107460 (Version 5)
Quarter: 2016Q1

REPORT INFORMATION
  Report Type: Spontaneous
  Country: US (occurrence: US)
  Receive Date: 20150512
  Receipt Date: 20160222
  Transmission Date: 20160525
  Serious: Yes (Other)
  Sender: FDA-Public Use
  Company Number: US-OTSUKA-2015_000246

PATIENT
  Sex: Male

DRUGS (4)
  1. ABILIFY MAINTENA [Suspect]
     Active Substance: ARIPIPRAZOLE
     Indication: SCHIZOPHRENIA
     Dosage: 400 MG, QM
     Route: 030
     Dates: start: 2014
  2. BENZTROPINE [Suspect]
     Active Substance: BENZTROPINE
     Indication: TRISMUS
     Dosage: 2 MG, BID
     Route: 048
     Dates: start: 20150424, end: 20150426
  3. BENZTROPINE [Suspect]
     Active Substance: BENZTROPINE
     Indication: SWELLING
  4. BENZTROPINE [Suspect]
     Active Substance: BENZTROPINE
     Indication: PAIN

REACTIONS (5)
  - Trismus [Recovered/Resolved]
  - Vomiting [Recovered/Resolved]
  - Injection site pain [Recovered/Resolved]
  - Swelling face [Recovered/Resolved]
  - Drug administered at inappropriate site [Unknown]
